FAERS Safety Report 10704759 (Version 1)
Quarter: 2015Q1

REPORT INFORMATION
  Report Type: Spontaneous
  Country: US (occurrence: US)
  Receive Date: 20150112
  Receipt Date: 20150112
  Transmission Date: 20150721
  Serious: Yes (Other)
  Sender: FDA-Public Use
  Company Number: US-ABBVIE-15P-163-1331078-00

PATIENT
  Age: 60 Year
  Sex: Male

DRUGS (2)
  1. ANDROGEL [Suspect]
     Active Substance: TESTOSTERONE
     Indication: BLOOD TESTOSTERONE DECREASED
     Dosage: AS PRESCRIBED, AS DIRECTED
     Route: 062
     Dates: start: 1999
  2. BLOOD THINNERS [Suspect]
     Active Substance: UNSPECIFIED INGREDIENT
     Indication: PRODUCT USED FOR UNKNOWN INDICATION
     Route: 065

REACTIONS (8)
  - Economic problem [Unknown]
  - Injury [Unknown]
  - Pain [Unknown]
  - Epistaxis [Unknown]
  - Impaired work ability [Unknown]
  - Emotional distress [Unknown]
  - Anxiety [Unknown]
  - Myocardial infarction [Unknown]

NARRATIVE: CASE EVENT DATE: 20130107
